FAERS Safety Report 12412213 (Version 2)
Quarter: 2016Q3

REPORT INFORMATION
  Report Type: Spontaneous
  Country: US (occurrence: US)
  Receive Date: 20160527
  Receipt Date: 20160706
  Transmission Date: 20161109
  Serious: No
  Sender: FDA-Public Use
  Company Number: US-BAYER-2016-092586

PATIENT
  Sex: Male

DRUGS (3)
  1. VARDENAFIL [Suspect]
     Active Substance: VARDENAFIL
  2. LEVITRA [Suspect]
     Active Substance: VARDENAFIL HYDROCHLORIDE TRIHYDRATE
     Dosage: 10 MG, UNK
  3. LEVITRA [Suspect]
     Active Substance: VARDENAFIL HYDROCHLORIDE TRIHYDRATE
     Dosage: 20 MG, UNK
     Route: 048

REACTIONS (5)
  - Drug administration error [None]
  - Hangover [None]
  - Flushing [None]
  - Intentional product misuse [None]
  - Product use issue [None]
